FAERS Safety Report 11132744 (Version 1)
Quarter: 2015Q2

REPORT INFORMATION
  Report Type: Report from Study
  Country: US (occurrence: US)
  Receive Date: 20150522
  Receipt Date: 20150522
  Transmission Date: 20150821
  Serious: Yes (Death, Hospitalization)
  Sender: FDA-Public Use
  Company Number: PHHO2015US009085

PATIENT
  Age: 74 Year
  Sex: Female
  Weight: 63.4 kg

DRUGS (6)
  1. COMPARATOR TEMOZOLOMIDE [Suspect]
     Active Substance: TEMOZOLOMIDE
     Indication: GLIOBLASTOMA MULTIFORME
     Dosage: 4550 MG, UNK
     Route: 048
     Dates: end: 20130626
  2. KEPPRA [Concomitant]
     Active Substance: LEVETIRACETAM
     Dosage: 750 MG, BID
     Route: 065
  3. AFINITOR [Suspect]
     Active Substance: EVEROLIMUS
     Indication: GLIOBLASTOMA MULTIFORME
     Dosage: 350 MG, UNK
     Route: 048
     Dates: end: 20130626
  4. KEPPRA [Concomitant]
     Active Substance: LEVETIRACETAM
     Indication: PRODUCT USED FOR UNKNOWN INDICATION
     Dosage: UNK
     Route: 065
  5. DECADRON [Concomitant]
     Active Substance: DEXAMETHASONE
     Indication: PRODUCT USED FOR UNKNOWN INDICATION
     Dosage: UNK
     Route: 065
  6. RADIATION THERAPY [Suspect]
     Active Substance: RADIATION THERAPY
     Dosage: TOTAL DOSE 60 GY (TILL DATE), 30 FRACTIONS (EXTERNAL BEAM, IMRT)
     Route: 065
     Dates: start: 20130523, end: 20130705

REACTIONS (11)
  - Lymphocyte count decreased [Unknown]
  - Muscular weakness [Unknown]
  - Mucosal infection [Unknown]
  - Fatigue [Unknown]
  - White blood cell count decreased [Unknown]
  - Acute respiratory failure [Fatal]
  - Sinus tachycardia [Unknown]
  - Platelet count decreased [Unknown]
  - Neutrophil count decreased [Unknown]
  - Hyponatraemia [Unknown]
  - Hypotension [Unknown]

NARRATIVE: CASE EVENT DATE: 20130626
